FAERS Safety Report 6186754-5 (Version None)
Quarter: 2009Q2

REPORT INFORMATION
  Report Type: 
  Country: None (occurrence: None)
  Receive Date: 20090508
  Receipt Date: 20090425
  Transmission Date: 20091009
  Serious: Yes (Other)
  Sender: FDA-Public Use
  Company Number: 2008-185278-NL

PATIENT
  Age: 40 Year
  Sex: Male
  Weight: 90 kg

DRUGS (9)
  1. REMERON [Suspect]
     Indication: DEPRESSION
     Dosage: 15 MG DAILY, 3 DOSES IN TOTAL
     Dates: start: 20070827
  2. ADVAIR HFA [Concomitant]
  3. CLONAZEPAM [Concomitant]
  4. IMOVANE [Concomitant]
  5. PANTOLOC ^BYK GULDEN^ [Concomitant]
  6. STEMETIL ^AVENTIS PHARMA^ [Concomitant]
  7. TIAZAC [Concomitant]
  8. RISPERDAL [Concomitant]
  9. MOTILIUM [Concomitant]

REACTIONS (2)
  - SUICIDAL IDEATION [None]
  - VIOLENCE-RELATED SYMPTOM [None]
